FAERS Safety Report 8667620 (Version 2)
Quarter: 2013Q4

REPORT INFORMATION
  Report Type: Spontaneous
  Country: US (occurrence: US)
  Receive Date: 20120717
  Receipt Date: 20131101
  Transmission Date: 20140711
  Serious: No
  Sender: FDA-Public Use
  Company Number: US-009507513-1207USA002619

PATIENT
  Age: 30 Year
  Sex: Female
  Weight: 57.6 kg

DRUGS (1)
  1. NUVARING [Suspect]
     Indication: CONTRACEPTION
     Dosage: 1 DF, UNK
     Dates: start: 20120512

REACTIONS (6)
  - Back pain [Unknown]
  - Anxiety [Unknown]
  - Dyspnoea [Unknown]
  - Breast tenderness [Unknown]
  - Weight increased [Unknown]
  - Mood swings [Unknown]
